FAERS Safety Report 21184861 (Version 1)
Quarter: 2022Q3

REPORT INFORMATION
  Report Type: Spontaneous
  Country: TW (occurrence: TW)
  Receive Date: 20220808
  Receipt Date: 20220808
  Transmission Date: 20221027
  Serious: Yes (Other)
  Sender: FDA-Public Use
  Company Number: TW-PFIZER INC-PV202200037606

PATIENT
  Sex: Female

DRUGS (1)
  1. TALZENNA [Suspect]
     Active Substance: TALAZOPARIB TOSYLATE

REACTIONS (3)
  - Haemoglobin decreased [Unknown]
  - Dyspnoea [Unknown]
  - Asthenia [Unknown]
